FAERS Safety Report 24205946 (Version 1)
Quarter: 2024Q3

REPORT INFORMATION
  Report Type: Spontaneous
  Country: US (occurrence: None)
  Receive Date: 20240812
  Receipt Date: 20240812
  Transmission Date: 20241017
  Serious: Yes (Disabling)
  Sender: Public
  Company Number: None

PATIENT
  Age: 66 Year
  Sex: Female
  Weight: 57.6 kg

DRUGS (1)
  1. ARIKAYCE [Suspect]
     Active Substance: AMIKACIN
     Indication: Lung disorder
     Dosage: FREQUENCY : DAILY;?
     Route: 055
     Dates: start: 20230901, end: 20240401

REACTIONS (1)
  - Deafness [None]

NARRATIVE: CASE EVENT DATE: 20240401
